FAERS Safety Report 8074230-4 (Version None)
Quarter: 2011Q4

REPORT INFORMATION
  Report Type: 
  Country: None (occurrence: None)
  Receive Date: 20111221
  Receipt Date: 20110616
  Transmission Date: 20120403
  Serious: Yes (Other)
  Sender: FDA-Public Use
  Company Number: PHHY2011US29479

PATIENT
  Age: 70 Year
  Sex: Male
  Weight: 195 kg

DRUGS (9)
  1. EXJADE [Suspect]
     Indication: MYELODYSPLASTIC SYNDROME
     Dosage: 1250 MG, ORAL
     Route: 048
     Dates: start: 20080923, end: 20110405
  2. PRAMIPEXOLE DIHYDROCHLORIDE [Concomitant]
  3. CRESTOR [Concomitant]
  4. NEUPOGEN [Concomitant]
  5. ATENOLOL [Concomitant]
  6. LOSARTAN POTASSIUM [Concomitant]
  7. ASPIRIN [Concomitant]
  8. PROCRIT [Concomitant]
  9. OMEPRAZOLE [Concomitant]

REACTIONS (1)
  - ALANINE AMINOTRANSFERASE INCREASED [None]
